FAERS Safety Report 21345796 (Version 2)
Quarter: 2022Q3

REPORT INFORMATION
  Report Type: Spontaneous
  Country: US (occurrence: US)
  Receive Date: 20220916
  Receipt Date: 20220921
  Transmission Date: 20221026
  Serious: No
  Sender: FDA-Public Use
  Company Number: US-PFIZER INC-202201165059

PATIENT
  Sex: Female
  Weight: 51.247 kg

DRUGS (4)
  1. XANAX [Suspect]
     Active Substance: ALPRAZOLAM
     Indication: Stress
     Dosage: 3X 0.25 AT 9AM,3X 0.25 3PM, 4X 0.25MG AT 11PM 7 DAYS A WEEK
     Route: 048
     Dates: start: 20220830
  2. XANAX [Suspect]
     Active Substance: ALPRAZOLAM
     Dosage: 0.25 MG
  3. XANAX [Suspect]
     Active Substance: ALPRAZOLAM
     Dosage: HALF OF 0.25 MG
  4. NASKY [Concomitant]

REACTIONS (8)
  - Headache [Unknown]
  - Feeling abnormal [Unknown]
  - Vision blurred [Recovering/Resolving]
  - Abnormal dreams [Recovering/Resolving]
  - Irritability [Recovering/Resolving]
  - Behaviour disorder [Recovering/Resolving]
  - Intentional dose omission [Unknown]
  - Product dose omission issue [Recovering/Resolving]

NARRATIVE: CASE EVENT DATE: 20220830
